FAERS Safety Report 8029784-0 (Version None)
Quarter: 2012Q1

REPORT INFORMATION
  Report Type: 
  Country: None (occurrence: None)
  Receive Date: 20120104
  Receipt Date: 20111221
  Transmission Date: 20120608
  Serious: Yes (Hospitalization)
  Sender: FDA-Public Use
  Company Number: 1000021154

PATIENT
  Age: 60 Year
  Sex: Male
  Weight: 86 kg

DRUGS (17)
  1. FLUCONAZOLE (FLUCONAZOLE) (100 MILLIGRAM) (FLUCONAZOLE) [Concomitant]
  2. SPIRIVA (TIOTROPIUM BROMIDE) (TIOTROPIUM BROMIDE) [Concomitant]
  3. CITALOPRAM (CITALOPRAM) (20 MILLIGRAM) (CITALOPRAM) [Concomitant]
  4. L-POLAMIDON (LEVOMETHADONE HYDROCHLORIDE) (DROPS) (LEVOMETHADONE HYDRO [Concomitant]
  5. ROFLUMILAST (ROFLUMILAST) (TABLETS) [Suspect]
     Indication: CHRONIC OBSTRUCTIVE PULMONARY DISEASE
     Dosage: 500 MCG (500 MCG,1 IN 1 D),ORAL
     Route: 048
     Dates: start: 20110427, end: 20110507
  6. TORASEMID (TORSEMIDE) (TORSEMIDE) [Concomitant]
  7. TETRAZEPAM (TETRAZEPAM) (TETRAZEPAM) [Concomitant]
  8. DOXEPIN (DOXEPIN) (DOXEPIN) [Concomitant]
  9. METHOCARBAMOL (METHOCARBAMOL) (METHOCARBAMOL) [Concomitant]
  10. ATMADISC (SERETIDE MITE) (SERETIDE MITE) [Concomitant]
  11. FOSTER (PIROXICAM) (PIROXICAM) [Concomitant]
  12. DEXAMETHASONE (DEXAMETHASONE) (4 MILLIGRAM) (DEXAMETHASONE) [Concomitant]
  13. POTASSIUM (POTASSIUM) (POTASSIUM) [Concomitant]
  14. DEXA-CT (DEXAMETHASONE) (DEXAMETHASONE) [Concomitant]
  15. PANTOPRAZOLE SODIUM [Concomitant]
  16. SYMBICORT (BUDESONIDE W/FORMOTEROL FUMARATE) (BUDESONIDE W/FORMOTEROL [Concomitant]
  17. ALBUTEROL [Concomitant]

REACTIONS (16)
  - VOMITING [None]
  - HEPATIC ENZYME INCREASED [None]
  - HYPERTENSION [None]
  - TACHYCARDIA [None]
  - ALANINE AMINOTRANSFERASE INCREASED [None]
  - GAMMA-GLUTAMYLTRANSFERASE INCREASED [None]
  - ASPARTATE AMINOTRANSFERASE INCREASED [None]
  - ALCOHOL ABUSE [None]
  - DIARRHOEA [None]
  - HEPATOMEGALY [None]
  - SUICIDAL IDEATION [None]
  - CANDIDIASIS [None]
  - BLOOD TRIGLYCERIDES INCREASED [None]
  - NAUSEA [None]
  - BLOOD CHOLESTEROL INCREASED [None]
  - HEPATIC STEATOSIS [None]
